FAERS Safety Report 21872220 (Version 13)
Quarter: 2025Q1

REPORT INFORMATION
  Report Type: Spontaneous
  Country: US (occurrence: US)
  Receive Date: 20230117
  Receipt Date: 20250226
  Transmission Date: 20250409
  Serious: No
  Sender: PFIZER
  Company Number: US-PFIZER INC-PV202300008894

PATIENT
  Age: 48 Year
  Sex: Female

DRUGS (5)
  1. LORBRENA [Suspect]
     Active Substance: LORLATINIB
  2. LORBRENA [Suspect]
     Active Substance: LORLATINIB
     Dosage: 75 MG, DAILY, 30-DAY SUPPLY
     Route: 048
  3. LORBRENA [Suspect]
     Active Substance: LORLATINIB
     Dosage: 75 MG, 1X/DAY (3 X 25 MG TABLETS)
     Route: 048
  4. LORBRENA [Suspect]
     Active Substance: LORLATINIB
     Dosage: 75 MG, DAILY
     Route: 048
  5. LORBRENA [Suspect]
     Active Substance: LORLATINIB
     Dosage: 75 MG, DAILY (TAKE 3 TABLETS OF 25 MG, DAILY)
     Route: 048

REACTIONS (1)
  - Drug intolerance [Unknown]
